FAERS Safety Report 16317513 (Version 1)
Quarter: 2019Q2

REPORT INFORMATION
  Report Type: Spontaneous
  Country: DE (occurrence: DE)
  Receive Date: 20190516
  Receipt Date: 20190516
  Transmission Date: 20190711
  Serious: Yes (Hospitalization)
  Sender: FDA-Public Use
  Company Number: DE-TEVA-2019-DE-1049120

PATIENT
  Age: 54 Year
  Sex: Female
  Weight: 54 kg

DRUGS (1)
  1. CIPROFLOXACIN. [Suspect]
     Active Substance: CIPROFLOXACIN
     Dosage: 500MG 2X DAILY
     Route: 048
     Dates: start: 20120120, end: 20120123

REACTIONS (21)
  - Arthritis [Unknown]
  - Calcinosis [Unknown]
  - Tendon pain [Recovered/Resolved with Sequelae]
  - Myalgia [Recovered/Resolved with Sequelae]
  - Diarrhoea [Not Recovered/Not Resolved]
  - Abdominal discomfort [Not Recovered/Not Resolved]
  - Mobility decreased [Unknown]
  - Headache [Unknown]
  - Pain [Recovered/Resolved with Sequelae]
  - Dry skin [Unknown]
  - Tinnitus [Recovered/Resolved with Sequelae]
  - Dry eye [Unknown]
  - Gastrooesophageal reflux disease [Not Recovered/Not Resolved]
  - Eye pain [Unknown]
  - Arthralgia [Unknown]
  - Tendonitis [Unknown]
  - Pain in extremity [Unknown]
  - Back pain [Unknown]
  - Musculoskeletal pain [Unknown]
  - Adverse reaction [Unknown]
  - Dysbiosis [Not Recovered/Not Resolved]

NARRATIVE: CASE EVENT DATE: 2012
